FAERS Safety Report 12852054 (Version 7)
Quarter: 2018Q2

REPORT INFORMATION
  Report Type: Spontaneous
  Country: FR (occurrence: FR)
  Receive Date: 20161017
  Receipt Date: 20180509
  Transmission Date: 20180711
  Serious: Yes (Hospitalization)
  Sender: FDA-Public Use
  Company Number: FR-CELGENEUS-FRA-2016102565

PATIENT
  Age: 77 Year
  Sex: Female
  Weight: 77 kg

DRUGS (40)
  1. DEXAMETHASONE. [Suspect]
     Active Substance: DEXAMETHASONE
     Indication: PLASMA CELL MYELOMA
     Dosage: 40MG
     Route: 048
     Dates: start: 20151112, end: 20160817
  2. METFORMIN HYDROCHLORIDE. [Concomitant]
     Active Substance: METFORMIN HYDROCHLORIDE
     Indication: HYPERGLYCAEMIA
     Dosage: 500MG
     Route: 048
     Dates: start: 20151012, end: 20160926
  3. OXYCODONE [Concomitant]
     Active Substance: OXYCODONE
     Indication: BACK PAIN
     Dosage: 10MG
     Route: 048
     Dates: start: 20151011
  4. VALACICLOVIR [Concomitant]
     Active Substance: VALACYCLOVIR HYDROCHLORIDE
     Dosage: 500MG
     Route: 048
  5. ALLOPURINOL. [Concomitant]
     Active Substance: ALLOPURINOL
     Indication: HYPERURICAEMIA
     Dosage: 500MG
     Route: 048
     Dates: start: 20151012
  6. OMEPRAZOLE. [Concomitant]
     Active Substance: OMEPRAZOLE
     Indication: GASTRITIS
     Dosage: 20MG
     Route: 048
     Dates: start: 20160713
  7. BACTRIM [Concomitant]
     Active Substance: SULFAMETHOXAZOLE\TRIMETHOPRIM
     Indication: INFECTION PROPHYLAXIS
     Dosage: 800/160MG
     Route: 048
     Dates: start: 20151112
  8. ORACILLINE [Concomitant]
     Active Substance: PENICILLIN V
     Indication: INFECTION PROPHYLAXIS
     Dosage: 2IU
     Route: 048
     Dates: start: 20151112
  9. ALLOPURINOL. [Concomitant]
     Active Substance: ALLOPURINOL
     Dosage: 300MG
     Route: 048
     Dates: start: 20151116
  10. POTASSIUM CHLORIDE. [Concomitant]
     Active Substance: POTASSIUM CHLORIDE
     Indication: PRODUCT USED FOR UNKNOWN INDICATION
     Route: 065
  11. OXYCODONE HYDROCHLORIDE. [Concomitant]
     Active Substance: OXYCODONE HYDROCHLORIDE
     Indication: PRODUCT USED FOR UNKNOWN INDICATION
     Route: 065
  12. REVLIMID [Suspect]
     Active Substance: LENALIDOMIDE
     Dosage: 25 MILLIGRAM
     Route: 048
     Dates: start: 20160928, end: 20161018
  13. REVLIMID [Suspect]
     Active Substance: LENALIDOMIDE
     Indication: PLASMA CELL MYELOMA
     Dosage: 25MG
     Route: 048
     Dates: start: 20151112, end: 20151202
  14. OXYCODONE [Concomitant]
     Active Substance: OXYCODONE
     Dosage: 15MG
     Route: 048
     Dates: start: 20151011
  15. CALCIUM FOLINATE [Concomitant]
     Active Substance: LEUCOVORIN CALCIUM
     Indication: HAEMATOTOXICITY
     Dosage: 25MG
     Route: 048
     Dates: start: 20151112
  16. ALLOPURINOL. [Concomitant]
     Active Substance: ALLOPURINOL
     Dosage: 200MG
     Route: 048
     Dates: start: 20151112
  17. MACROGOL [Concomitant]
     Active Substance: POLYETHYLENE GLYCOLS
     Indication: CONSTIPATION
     Dosage: 6
     Route: 048
     Dates: start: 20151201
  18. DOLIPRANE [Concomitant]
     Active Substance: ACETAMINOPHEN
     Dosage: 2000MG
     Route: 048
  19. GLYCEROL [Concomitant]
     Active Substance: GLYCERIN
     Indication: CONSTIPATION
     Dosage: NOT PROVIDED
     Route: 054
     Dates: start: 20151201
  20. STERCULIA URENS GUM [Concomitant]
     Indication: CONSTIPATION
     Dosage: NOT PROVIDED
     Route: 054
     Dates: start: 20151201
  21. PARACETAMOL [Concomitant]
     Active Substance: ACETAMINOPHEN
     Indication: PRODUCT USED FOR UNKNOWN INDICATION
     Route: 065
  22. DOLIPRANE [Concomitant]
     Active Substance: ACETAMINOPHEN
     Indication: BACK PAIN
     Dosage: 1500MG
     Route: 048
     Dates: start: 20151012
  23. VALACICLOVIR HYDROCHLORIDE [Concomitant]
     Active Substance: VALACYCLOVIR HYDROCHLORIDE
     Indication: PRODUCT USED FOR UNKNOWN INDICATION
     Route: 065
  24. OXYCODONE [Concomitant]
     Active Substance: OXYCODONE
     Dosage: 20MG
     Route: 048
  25. OXYCODONE [Concomitant]
     Active Substance: OXYCODONE
     Dosage: 1 TAB
     Route: 048
  26. ALLOPURINOL. [Concomitant]
     Active Substance: ALLOPURINOL
     Dosage: 300MG
     Route: 048
  27. STILNOX [Concomitant]
     Active Substance: ZOLPIDEM TARTRATE
     Indication: INSOMNIA
     Dosage: 10MG
     Route: 048
     Dates: start: 20160107
  28. UVEDOSE [Concomitant]
     Active Substance: CHOLECALCIFEROL
     Indication: VITAMIN D DEFICIENCY
     Dosage: 100000IU
     Route: 048
     Dates: start: 201603
  29. PLAVIX [Concomitant]
     Active Substance: CLOPIDOGREL BISULFATE
     Indication: ARTHRALGIA
     Dosage: 75MG
     Route: 048
     Dates: start: 20151012, end: 20160915
  30. REVLIMID [Suspect]
     Active Substance: LENALIDOMIDE
     Dosage: 25MG
     Route: 048
     Dates: start: 20151210, end: 20160623
  31. ALPRAZOLAM. [Concomitant]
     Active Substance: ALPRAZOLAM
     Indication: ANXIETY
     Dosage: 0.5MG
     Route: 048
  32. VALACICLOVIR [Concomitant]
     Active Substance: VALACYCLOVIR HYDROCHLORIDE
     Indication: INFECTION PROPHYLAXIS
     Dosage: 1000MG
     Route: 048
     Dates: start: 20151112
  33. DOLIPRANE [Concomitant]
     Active Substance: ACETAMINOPHEN
     Dosage: 1500MG
     Route: 048
  34. PLAVIX [Concomitant]
     Active Substance: CLOPIDOGREL BISULFATE
     Dosage: 75MG
     Route: 048
     Dates: start: 20160916
  35. DEXAMETHASONE. [Suspect]
     Active Substance: DEXAMETHASONE
     Dosage: 40MG
     Route: 048
     Dates: start: 20160928, end: 20161018
  36. OXYCODONE [Concomitant]
     Active Substance: OXYCODONE
     Dosage: 5MG
     Route: 048
     Dates: start: 20151011
  37. ORACILLINE [Concomitant]
     Active Substance: PENICILLIN V
     Route: 048
  38. CALCIUM FOLINATE [Concomitant]
     Active Substance: LEUCOVORIN CALCIUM
     Indication: PROPHYLAXIS
  39. ZOMETA [Concomitant]
     Active Substance: ZOLEDRONIC ACID
     Indication: OSTEOPOROSIS
     Dosage: 4MG
     Route: 041
     Dates: start: 20151113
  40. INEGY [Concomitant]
     Active Substance: EZETIMIBE\SIMVASTATIN
     Indication: PRODUCT USED FOR UNKNOWN INDICATION
     Route: 065

REACTIONS (3)
  - Pain in extremity [Recovered/Resolved]
  - Osteoarthritis [Recovered/Resolved]
  - Fatigue [Not Recovered/Not Resolved]

NARRATIVE: CASE EVENT DATE: 20160915
